FAERS Safety Report 26086494 (Version 2)
Quarter: 2025Q4

REPORT INFORMATION
  Report Type: Spontaneous
  Country: CA (occurrence: CA)
  Receive Date: 20251125
  Receipt Date: 20251223
  Transmission Date: 20260117
  Serious: Yes (Death, Other)
  Sender: BRISTOL-MYERS SQUIBB COMPANY
  Company Number: CA-BRISTOL-MYERS SQUIBB COMPANY-2025-158519

PATIENT
  Age: 43 Year
  Sex: Female
  Weight: 68 kg

DRUGS (212)
  1. TRIAMCINOLONE ACETONIDE [Suspect]
     Active Substance: TRIAMCINOLONE ACETONIDE
     Indication: Product used for unknown indication
  2. TRIAMCINOLONE ACETONIDE [Suspect]
     Active Substance: TRIAMCINOLONE ACETONIDE
  3. TRIAMCINOLONE ACETONIDE [Suspect]
     Active Substance: TRIAMCINOLONE ACETONIDE
  4. TRIAMCINOLONE ACETONIDE [Suspect]
     Active Substance: TRIAMCINOLONE ACETONIDE
  5. TRIAMCINOLONE ACETONIDE [Suspect]
     Active Substance: TRIAMCINOLONE ACETONIDE
  6. TRIAMCINOLONE ACETONIDE [Suspect]
     Active Substance: TRIAMCINOLONE ACETONIDE
  7. TRIAMCINOLONE ACETONIDE [Suspect]
     Active Substance: TRIAMCINOLONE ACETONIDE
  8. TRIAMCINOLONE ACETONIDE [Suspect]
     Active Substance: TRIAMCINOLONE ACETONIDE
     Route: 014
  9. TRIAMCINOLONE ACETONIDE [Suspect]
     Active Substance: TRIAMCINOLONE ACETONIDE
     Dosage: SUSPENSION INTRA-ARTICULAR
     Route: 014
  10. ACETAMINOPHEN [Concomitant]
     Active Substance: ACETAMINOPHEN
     Indication: Product used for unknown indication
  11. ADALIMUMAB [Concomitant]
     Active Substance: ADALIMUMAB
     Indication: Product used for unknown indication
     Route: 058
  12. AIMOVIG [Concomitant]
     Active Substance: ERENUMAB-AOOE
     Indication: Migraine
  13. ALENDRONIC ACID [Concomitant]
     Active Substance: ALENDRONIC ACID
     Indication: Rheumatoid arthritis
  14. ALENDRONIC ACID [Concomitant]
     Active Substance: ALENDRONIC ACID
     Route: 048
  15. ALENDRONIC ACID [Concomitant]
     Active Substance: ALENDRONIC ACID
     Route: 048
  16. PANTOPRAZOLE SODIUM ANHYDROUS [Concomitant]
     Active Substance: PANTOPRAZOLE SODIUM ANHYDROUS
     Indication: Product used for unknown indication
  17. PANTOPRAZOLE SODIUM ANHYDROUS [Concomitant]
     Active Substance: PANTOPRAZOLE SODIUM ANHYDROUS
  18. PANTOPRAZOLE SODIUM ANHYDROUS [Concomitant]
     Active Substance: PANTOPRAZOLE SODIUM ANHYDROUS
  19. PANTOPRAZOLE SODIUM ANHYDROUS [Concomitant]
     Active Substance: PANTOPRAZOLE SODIUM ANHYDROUS
  20. PANTOPRAZOLE SODIUM ANHYDROUS [Concomitant]
     Active Substance: PANTOPRAZOLE SODIUM ANHYDROUS
  21. PANTOPRAZOLE SODIUM ANHYDROUS [Concomitant]
     Active Substance: PANTOPRAZOLE SODIUM ANHYDROUS
  22. PANTOPRAZOLE SODIUM ANHYDROUS [Concomitant]
     Active Substance: PANTOPRAZOLE SODIUM ANHYDROUS
  23. PANTOPRAZOLE SODIUM ANHYDROUS [Concomitant]
     Active Substance: PANTOPRAZOLE SODIUM ANHYDROUS
  24. PANTOPRAZOLE SODIUM ANHYDROUS [Concomitant]
     Active Substance: PANTOPRAZOLE SODIUM ANHYDROUS
  25. PANTOPRAZOLE SODIUM ANHYDROUS [Concomitant]
     Active Substance: PANTOPRAZOLE SODIUM ANHYDROUS
  26. PANTOPRAZOLE SODIUM ANHYDROUS [Concomitant]
     Active Substance: PANTOPRAZOLE SODIUM ANHYDROUS
  27. PANTOPRAZOLE SODIUM ANHYDROUS [Concomitant]
     Active Substance: PANTOPRAZOLE SODIUM ANHYDROUS
  28. PANTOPRAZOLE SODIUM ANHYDROUS [Concomitant]
     Active Substance: PANTOPRAZOLE SODIUM ANHYDROUS
  29. PANTOPRAZOLE SODIUM ANHYDROUS [Concomitant]
     Active Substance: PANTOPRAZOLE SODIUM ANHYDROUS
  30. PANTOPRAZOLE SODIUM ANHYDROUS [Concomitant]
     Active Substance: PANTOPRAZOLE SODIUM ANHYDROUS
  31. PANTOPRAZOLE SODIUM ANHYDROUS [Concomitant]
     Active Substance: PANTOPRAZOLE SODIUM ANHYDROUS
  32. PREDNISONE [Concomitant]
     Active Substance: PREDNISONE
     Indication: Product used for unknown indication
  33. APREMILAST [Concomitant]
     Active Substance: APREMILAST
     Indication: Product used for unknown indication
  34. ARAVA [Concomitant]
     Active Substance: LEFLUNOMIDE
     Indication: Product used for unknown indication
  35. CAFFEINE CITRATE [Concomitant]
     Active Substance: CAFFEINE CITRATE
     Indication: Product used for unknown indication
  36. CALCIUM CARBONATE [Concomitant]
     Active Substance: CALCIUM CARBONATE
     Indication: Product used for unknown indication
  37. CALCIUM CARBONATE [Concomitant]
     Active Substance: CALCIUM CARBONATE
  38. CALCIUM GLUCONATE [Concomitant]
     Active Substance: CALCIUM GLUCONATE
     Indication: Product used for unknown indication
  39. CANDESARTAN CILEXETIL [Concomitant]
     Active Substance: CANDESARTAN CILEXETIL
     Indication: Migraine
     Route: 048
  40. CELEBREX [Concomitant]
     Active Substance: CELECOXIB
     Indication: Product used for unknown indication
  41. CERTOLIZUMAB PEGOL [Concomitant]
     Active Substance: CERTOLIZUMAB PEGOL
     Indication: Product used for unknown indication
  42. CETIRIZINE [Concomitant]
     Active Substance: CETIRIZINE HYDROCHLORIDE
     Indication: Product used for unknown indication
  43. CETIRIZINE [Concomitant]
     Active Substance: CETIRIZINE HYDROCHLORIDE
  44. CETIRIZINE [Concomitant]
     Active Substance: CETIRIZINE HYDROCHLORIDE
  45. CETIRIZINE [Concomitant]
     Active Substance: CETIRIZINE HYDROCHLORIDE
  46. CETIRIZINE HYDROCHLORIDE [Concomitant]
     Active Substance: CETIRIZINE HYDROCHLORIDE
     Indication: Product used for unknown indication
  47. CETIRIZINE HYDROCHLORIDE [Concomitant]
     Active Substance: CETIRIZINE HYDROCHLORIDE
  48. CODEINE [Concomitant]
     Active Substance: CODEINE
     Indication: Product used for unknown indication
  49. COSENTYX [Concomitant]
     Active Substance: SECUKINUMAB
     Indication: Rheumatoid arthritis
  50. COSENTYX [Concomitant]
     Active Substance: SECUKINUMAB
     Indication: Psoriatic arthropathy
  51. CYANOCOBALAMIN [Concomitant]
     Active Substance: CYANOCOBALAMIN
     Indication: Product used for unknown indication
  52. DESOXIMETASONE [Concomitant]
     Active Substance: DESOXIMETASONE
     Indication: Product used for unknown indication
  53. DESOXIMETASONE [Concomitant]
     Active Substance: DESOXIMETASONE
  54. DESOXIMETASONE [Concomitant]
     Active Substance: DESOXIMETASONE
  55. DESOXIMETASONE [Concomitant]
     Active Substance: DESOXIMETASONE
  56. DESOXIMETASONE [Concomitant]
     Active Substance: DESOXIMETASONE
  57. DESOXIMETASONE [Concomitant]
     Active Substance: DESOXIMETASONE
  58. DESOXIMETASONE [Concomitant]
     Active Substance: DESOXIMETASONE
  59. DESOXIMETASONE [Concomitant]
     Active Substance: DESOXIMETASONE
  60. DESOXIMETASONE [Concomitant]
     Active Substance: DESOXIMETASONE
  61. DICLOFENAC POTASSIUM [Concomitant]
     Active Substance: DICLOFENAC POTASSIUM
     Indication: Product used for unknown indication
  62. DICLOFENAC SODIUM [Concomitant]
     Active Substance: DICLOFENAC SODIUM
     Indication: Product used for unknown indication
  63. DICLOFENAC SODIUM [Concomitant]
     Active Substance: DICLOFENAC SODIUM
  64. DOMPERIDONE\PANTOPRAZOLE SODIUM [Concomitant]
     Active Substance: DOMPERIDONE\PANTOPRAZOLE SODIUM
     Indication: Product used for unknown indication
  65. DOMPERIDONE\PANTOPRAZOLE SODIUM [Concomitant]
     Active Substance: DOMPERIDONE\PANTOPRAZOLE SODIUM
  66. ENBREL [Concomitant]
     Active Substance: ETANERCEPT
     Indication: Product used for unknown indication
  67. ERELZI [Concomitant]
     Active Substance: ETANERCEPT-SZZS
     Indication: Rheumatoid arthritis
  68. ERELZI [Concomitant]
     Active Substance: ETANERCEPT-SZZS
  69. ERENUMAB [Concomitant]
     Active Substance: ERENUMAB
     Indication: Migraine
  70. FETZIMA [Concomitant]
     Active Substance: LEVOMILNACIPRAN HYDROCHLORIDE
     Indication: Product used for unknown indication
  71. FINACEA [Concomitant]
     Active Substance: AZELAIC ACID
     Indication: Product used for unknown indication
  72. FOLIC ACID [Concomitant]
     Active Substance: FOLIC ACID
     Indication: Rheumatoid arthritis
  73. FOLIC ACID [Concomitant]
     Active Substance: FOLIC ACID
     Route: 048
  74. FOLIC ACID [Concomitant]
     Active Substance: FOLIC ACID
  75. FOLIC ACID [Concomitant]
     Active Substance: FOLIC ACID
  76. FOLIC ACID [Concomitant]
     Active Substance: FOLIC ACID
  77. FOLIC ACID [Concomitant]
     Active Substance: FOLIC ACID
  78. FOLIC ACID [Concomitant]
     Active Substance: FOLIC ACID
  79. FOLIC ACID [Concomitant]
     Active Substance: FOLIC ACID
     Route: 048
  80. FOLIC ACID [Concomitant]
     Active Substance: FOLIC ACID
     Route: 048
  81. FOLIC ACID [Concomitant]
     Active Substance: FOLIC ACID
     Route: 048
  82. FOLIC ACID [Concomitant]
     Active Substance: FOLIC ACID
     Route: 048
  83. FOLIC ACID [Concomitant]
     Active Substance: FOLIC ACID
     Route: 058
  84. FOLIC ACID [Concomitant]
     Active Substance: FOLIC ACID
     Route: 048
  85. FOLIC ACID [Concomitant]
     Active Substance: FOLIC ACID
  86. FOLIC ACID [Concomitant]
     Active Substance: FOLIC ACID
  87. FOLIC ACID [Concomitant]
     Active Substance: FOLIC ACID
     Route: 048
  88. FOLIC ACID [Concomitant]
     Active Substance: FOLIC ACID
  89. GOLIMUMAB [Concomitant]
     Active Substance: GOLIMUMAB
     Indication: Product used for unknown indication
  90. HUMIRA [Concomitant]
     Active Substance: ADALIMUMAB
     Indication: Product used for unknown indication
     Dosage: SOLUTION SUBCUTANEOUS
     Route: 058
  91. HYDROCORTISONE [Concomitant]
     Active Substance: HYDROCORTISONE
     Indication: Product used for unknown indication
  92. HYDROXYCHLOROQUINE SULFATE [Concomitant]
     Active Substance: HYDROXYCHLOROQUINE SULFATE
     Indication: Product used for unknown indication
  93. HYRIMOZ [Concomitant]
     Active Substance: ADALIMUMAB-ADAZ
     Indication: Product used for unknown indication
     Dosage: SOLUTION SUBCUTANEOUS
     Route: 058
  94. IBUPROFEN [Concomitant]
     Active Substance: IBUPROFEN
     Indication: Product used for unknown indication
  95. LAMICTAL [Concomitant]
     Active Substance: LAMOTRIGINE
     Indication: Product used for unknown indication
     Route: 048
  96. LAMICTAL [Concomitant]
     Active Substance: LAMOTRIGINE
     Route: 048
  97. LAMICTAL [Concomitant]
     Active Substance: LAMOTRIGINE
  98. LAMICTAL [Concomitant]
     Active Substance: LAMOTRIGINE
     Route: 048
  99. LAMICTAL [Concomitant]
     Active Substance: LAMOTRIGINE
     Route: 048
  100. LAMICTAL [Concomitant]
     Active Substance: LAMOTRIGINE
     Route: 048
  101. LAMICTAL [Concomitant]
     Active Substance: LAMOTRIGINE
     Route: 048
  102. LEFLUNOMIDE [Concomitant]
     Active Substance: LEFLUNOMIDE
     Indication: Rheumatoid arthritis
  103. LEFLUNOMIDE [Concomitant]
     Active Substance: LEFLUNOMIDE
  104. LEFLUNOMIDE [Concomitant]
     Active Substance: LEFLUNOMIDE
  105. LEFLUNOMIDE [Concomitant]
     Active Substance: LEFLUNOMIDE
  106. LISINOPRIL [Concomitant]
     Active Substance: LISINOPRIL
     Indication: Product used for unknown indication
  107. MAGNESIUM [Concomitant]
     Active Substance: MAGNESIUM
     Indication: Product used for unknown indication
  108. MAGNESIUM [Concomitant]
     Active Substance: MAGNESIUM
  109. MAGNESIUM CARBONATE [Concomitant]
     Active Substance: MAGNESIUM CARBONATE
     Indication: Product used for unknown indication
  110. MAGNESIUM CITRATE [Concomitant]
     Active Substance: MAGNESIUM CITRATE
     Indication: Product used for unknown indication
  111. MAGNESIUM CITRATE [Concomitant]
     Active Substance: MAGNESIUM CITRATE
  112. MAGNESIUM HYDROXIDE [Concomitant]
     Active Substance: MAGNESIUM HYDROXIDE
     Indication: Product used for unknown indication
  113. METHOTREXATE [Concomitant]
     Active Substance: METHOTREXATE
     Indication: Rheumatoid arthritis
  114. METHOTREXATE [Concomitant]
     Active Substance: METHOTREXATE
     Indication: Psoriatic arthropathy
     Route: 048
  115. METHOTREXATE [Concomitant]
     Active Substance: METHOTREXATE
  116. METHOTREXATE [Concomitant]
     Active Substance: METHOTREXATE
     Route: 048
  117. METHOTREXATE [Concomitant]
     Active Substance: METHOTREXATE
     Route: 048
  118. METHOTREXATE [Concomitant]
     Active Substance: METHOTREXATE
  119. METHOTREXATE [Concomitant]
     Active Substance: METHOTREXATE
     Route: 048
  120. METHOTREXATE [Concomitant]
     Active Substance: METHOTREXATE
  121. METHOTREXATE [Concomitant]
     Active Substance: METHOTREXATE
     Route: 048
  122. METHOTREXATE [Concomitant]
     Active Substance: METHOTREXATE
  123. METHOTREXATE [Concomitant]
     Active Substance: METHOTREXATE
  124. METHOTREXATE [Concomitant]
     Active Substance: METHOTREXATE
     Route: 048
  125. METHOTREXATE [Concomitant]
     Active Substance: METHOTREXATE
  126. METHOTREXATE [Concomitant]
     Active Substance: METHOTREXATE
     Route: 048
  127. METHOTREXATE [Concomitant]
     Active Substance: METHOTREXATE
  128. METHOTREXATE [Concomitant]
     Active Substance: METHOTREXATE
  129. METHOTREXATE [Concomitant]
     Active Substance: METHOTREXATE
     Route: 048
  130. METHOTREXATE [Concomitant]
     Active Substance: METHOTREXATE
  131. METHOTREXATE [Concomitant]
     Active Substance: METHOTREXATE
  132. METHOTREXATE [Concomitant]
     Active Substance: METHOTREXATE
     Route: 048
  133. METHOTREXATE [Concomitant]
     Active Substance: METHOTREXATE
  134. METHOTREXATE [Concomitant]
     Active Substance: METHOTREXATE
  135. METHOTREXATE [Concomitant]
     Active Substance: METHOTREXATE
  136. METHOTREXATE [Concomitant]
     Active Substance: METHOTREXATE
     Route: 048
  137. METHOTREXATE [Concomitant]
     Active Substance: METHOTREXATE
     Route: 048
  138. METHOTREXATE [Concomitant]
     Active Substance: METHOTREXATE
  139. METHOTREXATE [Concomitant]
     Active Substance: METHOTREXATE
  140. METHOTREXATE [Concomitant]
     Active Substance: METHOTREXATE
  141. METHOTREXATE [Concomitant]
     Active Substance: METHOTREXATE
     Route: 048
  142. METHOTREXATE [Concomitant]
     Active Substance: METHOTREXATE
  143. METHOTREXATE [Concomitant]
     Active Substance: METHOTREXATE
     Route: 048
  144. METHOTREXATE [Concomitant]
     Active Substance: METHOTREXATE
  145. METHOTREXATE [Concomitant]
     Active Substance: METHOTREXATE
     Route: 048
  146. METHOTREXATE [Concomitant]
     Active Substance: METHOTREXATE
  147. METHOTREXATE [Concomitant]
     Active Substance: METHOTREXATE
     Route: 048
  148. METHOTREXATE [Concomitant]
     Active Substance: METHOTREXATE
     Route: 048
  149. METHOTREXATE [Concomitant]
     Active Substance: METHOTREXATE
  150. METHOTREXATE [Concomitant]
     Active Substance: METHOTREXATE
  151. METHOTREXATE [Concomitant]
     Active Substance: METHOTREXATE
     Route: 048
  152. METHOTREXATE [Concomitant]
     Active Substance: METHOTREXATE
     Route: 048
  153. MYRBETRIQ [Concomitant]
     Active Substance: MIRABEGRON
     Indication: Product used for unknown indication
     Route: 048
  154. MYRBETRIQ [Concomitant]
     Active Substance: MIRABEGRON
     Dosage: TABLET (EXTENDED RELEASE)
     Route: 048
  155. MYRBETRIQ [Concomitant]
     Active Substance: MIRABEGRON
     Route: 048
  156. NAPROXEN [Concomitant]
     Active Substance: NAPROXEN
     Indication: Product used for unknown indication
  157. NAPROXEN [Concomitant]
     Active Substance: NAPROXEN
  158. NAPROXEN [Concomitant]
     Active Substance: NAPROXEN
  159. NAPROXEN [Concomitant]
     Active Substance: NAPROXEN
  160. NAPROXEN [Concomitant]
     Active Substance: NAPROXEN
  161. NAPROXEN [Concomitant]
     Active Substance: NAPROXEN
  162. NAPROXEN [Concomitant]
     Active Substance: NAPROXEN
  163. NAPROXEN [Concomitant]
     Active Substance: NAPROXEN
  164. NAPROXEN [Concomitant]
     Active Substance: NAPROXEN
  165. NAPROXEN [Concomitant]
     Active Substance: NAPROXEN
  166. NAPROXEN [Concomitant]
     Active Substance: NAPROXEN
  167. NAPROXEN SODIUM [Concomitant]
     Active Substance: NAPROXEN SODIUM
     Indication: Product used for unknown indication
  168. PHOSPHORUS [Concomitant]
     Active Substance: PHOSPHORUS
     Indication: Product used for unknown indication
  169. PHOSPHORUS [Concomitant]
     Active Substance: PHOSPHORUS
  170. PSEUDOEPHEDRINE HYDROCHLORIDE [Concomitant]
     Active Substance: PSEUDOEPHEDRINE HYDROCHLORIDE
     Indication: Product used for unknown indication
  171. QUETIAPINE FUMARATE [Concomitant]
     Active Substance: QUETIAPINE FUMARATE
     Indication: Product used for unknown indication
  172. REACTINE [Concomitant]
     Indication: Product used for unknown indication
  173. REACTINE [Concomitant]
  174. RISEDRONATE SODIUM [Concomitant]
     Active Substance: RISEDRONATE SODIUM
     Indication: Product used for unknown indication
  175. RITUXIMAB [Concomitant]
     Active Substance: RITUXIMAB
     Indication: Rheumatoid arthritis
     Route: 042
  176. RITUXIMAB [Concomitant]
     Active Substance: RITUXIMAB
  177. RITUXIMAB [Concomitant]
     Active Substance: RITUXIMAB
     Route: 058
  178. RITUXIMAB [Concomitant]
     Active Substance: RITUXIMAB
     Route: 043
  179. STELARA [Concomitant]
     Active Substance: USTEKINUMAB
     Indication: Product used for unknown indication
     Dosage: SOLUTION SUBCUTANEOUS
     Route: 058
  180. STRATTERA [Concomitant]
     Active Substance: ATOMOXETINE HYDROCHLORIDE
     Indication: Migraine
  181. STRATTERA [Concomitant]
     Active Substance: ATOMOXETINE HYDROCHLORIDE
  182. STRATTERA [Concomitant]
     Active Substance: ATOMOXETINE HYDROCHLORIDE
  183. TOCILIZUMAB [Concomitant]
     Active Substance: TOCILIZUMAB
     Indication: Product used for unknown indication
  184. TOFACITINIB [Concomitant]
     Active Substance: TOFACITINIB
     Indication: Product used for unknown indication
  185. TOPICORT [Concomitant]
     Active Substance: DESOXIMETASONE
     Indication: Product used for unknown indication
  186. TOPICORT [Concomitant]
     Active Substance: DESOXIMETASONE
  187. TOPICORT [Concomitant]
     Active Substance: DESOXIMETASONE
  188. TOPIRAMATE [Concomitant]
     Active Substance: TOPIRAMATE
     Indication: Migraine
  189. TOPIRAMATE [Concomitant]
     Active Substance: TOPIRAMATE
  190. TOPIRAMATE [Concomitant]
     Active Substance: TOPIRAMATE
  191. TOPIRAMATE [Concomitant]
     Active Substance: TOPIRAMATE
  192. TOPIRAMATE [Concomitant]
     Active Substance: TOPIRAMATE
  193. TOPIRAMATE [Concomitant]
     Active Substance: TOPIRAMATE
  194. TOPIRAMATE [Concomitant]
     Active Substance: TOPIRAMATE
  195. TOPIRAMATE [Concomitant]
     Active Substance: TOPIRAMATE
  196. TRAZODONE [Concomitant]
     Active Substance: TRAZODONE HYDROCHLORIDE
     Indication: Product used for unknown indication
  197. TRAZODONE [Concomitant]
     Active Substance: TRAZODONE HYDROCHLORIDE
  198. TRAZODONE [Concomitant]
     Active Substance: TRAZODONE HYDROCHLORIDE
  199. TUMS [Concomitant]
     Active Substance: CALCIUM CARBONATE
     Indication: Product used for unknown indication
  200. VITAMIN C [Concomitant]
     Active Substance: ASCORBIC ACID
     Indication: Product used for unknown indication
  201. VITAMIN D [Concomitant]
     Active Substance: VITAMIN D NOS
     Indication: Product used for unknown indication
  202. VITAMIN D3 [Concomitant]
     Active Substance: CHOLECALCIFEROL
     Indication: Product used for unknown indication
  203. VITAMIN D3 [Concomitant]
     Active Substance: CHOLECALCIFEROL
  204. VITAMIN D3 [Concomitant]
     Active Substance: CHOLECALCIFEROL
  205. VITAMIN D3 [Concomitant]
     Active Substance: CHOLECALCIFEROL
  206. VITAMIN D3 [Concomitant]
     Active Substance: CHOLECALCIFEROL
  207. DICLOFENAC DIETHYLAMINE [Concomitant]
     Active Substance: DICLOFENAC DIETHYLAMINE
     Indication: Product used for unknown indication
  208. ACETAMINOPHEN\OXYCODONE HYDROCHLORIDE\OXYCODONE TEREPHTHALATE [Concomitant]
     Active Substance: ACETAMINOPHEN\OXYCODONE HYDROCHLORIDE\OXYCODONE TEREPHTHALATE
     Indication: Product used for unknown indication
  209. HYDROMORPHONE [Concomitant]
     Active Substance: HYDROMORPHONE
     Indication: Product used for unknown indication
  210. HYDROMORPHONE [Concomitant]
     Active Substance: HYDROMORPHONE
  211. HYDROMORPHONE [Concomitant]
     Active Substance: HYDROMORPHONE
     Dosage: 121.0  DAYS
  212. MINERALS\VITAMINS [Concomitant]
     Active Substance: MINERALS\VITAMINS
     Indication: Product used for unknown indication

REACTIONS (1)
  - Death [Fatal]
